FAERS Safety Report 20615074 (Version 1)
Quarter: 2022Q1

REPORT INFORMATION
  Report Type: Spontaneous
  Country: US (occurrence: US)
  Receive Date: 20220321
  Receipt Date: 20220321
  Transmission Date: 20220424
  Serious: No
  Sender: FDA-Public Use
  Company Number: US-SA-SAC20220314000809

PATIENT
  Age: 13 Year
  Sex: Male

DRUGS (1)
  1. DUPIXENT [Suspect]
     Active Substance: DUPILUMAB
     Indication: Dermatitis atopic
     Dosage: 300 MG, QOW
     Route: 058
     Dates: start: 20201119

REACTIONS (6)
  - Headache [Unknown]
  - Migraine [Unknown]
  - Vision blurred [Unknown]
  - Paraesthesia [Unknown]
  - Photophobia [Unknown]
  - Product use issue [Unknown]

NARRATIVE: CASE EVENT DATE: 20201119
